FAERS Safety Report 17216537 (Version 5)
Quarter: 2020Q2

REPORT INFORMATION
  Report Type: Spontaneous
  Country: US (occurrence: US)
  Receive Date: 20191230
  Receipt Date: 20200513
  Transmission Date: 20200713
  Serious: No
  Sender: FDA-Public Use
  Company Number: US-AMGEN-USASP2019215380

PATIENT
  Age: 50 Year
  Sex: Female

DRUGS (2)
  1. EVENITY [Suspect]
     Active Substance: ROMOSOZUMAB-AQQG
     Indication: OSTEOPOROSIS
     Dosage: 210 MILLIGRAM, QMO
     Route: 065
     Dates: start: 201910
  2. EVENITY [Suspect]
     Active Substance: ROMOSOZUMAB-AQQG
     Dosage: 210 MILLIGRAM, QMO
     Route: 065

REACTIONS (12)
  - Wrong technique in product usage process [Unknown]
  - Mobility decreased [Not Recovered/Not Resolved]
  - Insomnia [Not Recovered/Not Resolved]
  - Injection site extravasation [Unknown]
  - Incorrect dose administered [Unknown]
  - Adverse drug reaction [Unknown]
  - Mental disorder [Not Recovered/Not Resolved]
  - Stress [Not Recovered/Not Resolved]
  - Vascular injury [Unknown]
  - Intentional product misuse [Unknown]
  - Accidental exposure to product [Unknown]
  - Injection site haemorrhage [Unknown]

NARRATIVE: CASE EVENT DATE: 2019
